FAERS Safety Report 12883243 (Version 3)
Quarter: 2016Q4

REPORT INFORMATION
  Report Type: Report from Study
  Country: DE (occurrence: DE)
  Receive Date: 20161025
  Receipt Date: 20161111
  Transmission Date: 20170207
  Serious: Yes (Hospitalization, Disabling, Other)
  Sender: FDA-Public Use
  Company Number: DE-BEH-2016074463

PATIENT
  Age: 63 Year
  Sex: Female
  Weight: 74 kg

DRUGS (15)
  1. ENDO-PARACTOL [Concomitant]
     Dosage: UNK
     Route: 065
     Dates: start: 20160726
  2. PRIVIGEN [Suspect]
     Active Substance: HUMAN IMMUNOGLOBULIN G
     Indication: SECONDARY IMMUNODEFICIENCY
     Dosage: 20 G, TOT
     Route: 042
     Dates: start: 20160627, end: 20160627
  3. BENDAMUSTINE [Concomitant]
     Active Substance: BENDAMUSTINE
     Indication: CHEMOTHERAPY
     Dosage: UNK
     Route: 065
     Dates: start: 201604, end: 20160704
  4. TAZOBAC [Concomitant]
     Active Substance: PIPERACILLIN SODIUM\TAZOBACTAM SODIUM
     Indication: ANTIBIOTIC THERAPY
     Dosage: UNK
     Route: 065
     Dates: start: 20160807, end: 20160815
  5. PANTOPRAZOLE [Concomitant]
     Active Substance: PANTOPRAZOLE SODIUM
     Dosage: 40 MG, OD
     Route: 065
  6. PROPOFOL. [Concomitant]
     Active Substance: PROPOFOL
     Dosage: 130 MG, UNK
     Route: 042
     Dates: start: 20160726
  7. BONDRONAT                          /01304701/ [Concomitant]
     Active Substance: IBANDRONIC ACID
     Dosage: UNK
     Route: 065
     Dates: start: 20160615
  8. MEROPENEM. [Concomitant]
     Active Substance: MEROPENEM
     Indication: ANTIBIOTIC THERAPY
     Dosage: UNK
     Route: 065
     Dates: start: 20160818, end: 20160829
  9. PRIVIGEN [Suspect]
     Active Substance: HUMAN IMMUNOGLOBULIN G
     Indication: B-CELL LYMPHOMA STAGE III
     Dosage: 10 G, UNK
     Route: 042
     Dates: start: 20160627, end: 20160627
  10. L-THYROXIN [Concomitant]
     Active Substance: LEVOTHYROXINE SODIUM
     Dosage: 0.125 MG, OD
     Route: 065
  11. MEROPENEM. [Concomitant]
     Active Substance: MEROPENEM
     Dosage: UNK
     Route: 065
     Dates: start: 20160925, end: 20161005
  12. TORASEMIDE [Concomitant]
     Active Substance: TORSEMIDE
     Route: 065
  13. RITUXIMAB [Concomitant]
     Active Substance: RITUXIMAB
     Indication: CHEMOTHERAPY
     Dosage: UNK
     Route: 065
     Dates: start: 201604, end: 20160704
  14. TAZOBAC [Concomitant]
     Active Substance: PIPERACILLIN SODIUM\TAZOBACTAM SODIUM
     Dosage: UNK
     Route: 065
     Dates: start: 20160817
  15. TAZOBAC [Concomitant]
     Active Substance: PIPERACILLIN SODIUM\TAZOBACTAM SODIUM
     Dosage: UNK
     Route: 065
     Dates: start: 20160912, end: 20160921

REACTIONS (4)
  - Metastases to peritoneum [Not Recovered/Not Resolved]
  - Adenocarcinoma gastric [Not Recovered/Not Resolved]
  - Impaired gastric emptying [Recovered/Resolved]
  - Myelodysplastic syndrome [Unknown]

NARRATIVE: CASE EVENT DATE: 20160727
